FAERS Safety Report 11723226 (Version 1)
Quarter: 2015Q4

REPORT INFORMATION
  Report Type: Spontaneous
  Country: US (occurrence: None)
  Receive Date: 20151110
  Receipt Date: 20151110
  Transmission Date: 20160304
  Serious: Yes (Other)
  Sender: FDA-Public Use
  Company Number: None

PATIENT
  Age: 87 Year
  Sex: Male
  Weight: 64.86 kg

DRUGS (1)
  1. AZITHROMYCIN [Suspect]
     Active Substance: AZITHROMYCIN ANHYDROUS
     Dosage: 2 PILLS THEN 1 A DAY FOR 4?5DAYS
     Route: 048

REACTIONS (2)
  - Yellow skin [None]
  - Chromaturia [None]

NARRATIVE: CASE EVENT DATE: 20151109
